FAERS Safety Report 15985823 (Version 4)
Quarter: 2019Q3

REPORT INFORMATION
  Report Type: Report from Study
  Country: JP (occurrence: JP)
  Receive Date: 20190220
  Receipt Date: 20190709
  Transmission Date: 20191004
  Serious: Yes (Death)
  Sender: FDA-Public Use
  Company Number: JP-DSJP-DSJ-2019-105895AA

PATIENT

DRUGS (4)
  1. BROTIZOLAM [Suspect]
     Active Substance: BROTIZOLAM
     Indication: PRODUCT USED FOR UNKNOWN INDICATION
     Dosage: 0.125 MG, QD BEFORE BEDTIME
     Route: 065
     Dates: start: 20180111, end: 20180220
  2. EDOXABAN [Suspect]
     Active Substance: EDOXABAN TOSYLATE
     Indication: ATRIAL FIBRILLATION
     Dosage: 30 MG, QD, MORNING
     Route: 048
  3. URSO [Suspect]
     Active Substance: URSODIOL
     Indication: PRODUCT USED FOR UNKNOWN INDICATION
     Dosage: 200 MG, TID , MORNING, DAYTIME, AND EVENING
     Route: 065
     Dates: start: 20180111, end: 20180220
  4. MAINTATE [Suspect]
     Active Substance: BISOPROLOL FUMARATE
     Indication: PRODUCT USED FOR UNKNOWN INDICATION
     Dosage: 1.25 MG, QD MORNING
     Route: 065
     Dates: start: 20170425, end: 20180220

REACTIONS (1)
  - Sudden death [Fatal]

NARRATIVE: CASE EVENT DATE: 20180220
